FAERS Safety Report 18864717 (Version 5)
Quarter: 2021Q3

REPORT INFORMATION
  Report Type: Report from Study
  Country: US (occurrence: US)
  Receive Date: 20210208
  Receipt Date: 20210917
  Transmission Date: 20211014
  Serious: No
  Sender: FDA-Public Use
  Company Number: NVSC2021US027914

PATIENT
  Age: 72 Year
  Sex: Male

DRUGS (2)
  1. ENTRESTO [Suspect]
     Active Substance: SACUBITRIL\VALSARTAN
     Indication: CARDIAC FAILURE
     Dosage: 50 MG, BID (24/26 MG)
     Route: 048
     Dates: start: 20210116
  2. ENTRESTO [Suspect]
     Active Substance: SACUBITRIL\VALSARTAN
     Dosage: 100 MG, BID (49/51 MG)
     Route: 048

REACTIONS (8)
  - Dysphonia [Unknown]
  - Eye pruritus [Unknown]
  - Nasal congestion [Not Recovered/Not Resolved]
  - Ear discomfort [Unknown]
  - Hypotension [Unknown]
  - Productive cough [Not Recovered/Not Resolved]
  - Oropharyngeal pain [Unknown]
  - Hypersensitivity [Not Recovered/Not Resolved]

NARRATIVE: CASE EVENT DATE: 20210203
